FAERS Safety Report 8118941-0 (Version None)
Quarter: 2012Q1

REPORT INFORMATION
  Report Type: 
  Country: None (occurrence: None)
  Receive Date: 20120207
  Receipt Date: 20120131
  Transmission Date: 20120608
  Serious: Yes (Death, Hospitalization)
  Sender: FDA-Public Use
  Company Number: DE-ROCHE-1033055

PATIENT
  Sex: Female
  Weight: 45 kg

DRUGS (8)
  1. VISMODEGIB [Suspect]
     Indication: BASAL CELL CARCINOMA
     Dosage: LAST DOSE PRIOR TO SAE: 19/JAN/2012
     Route: 048
     Dates: start: 20111229
  2. RAMIPRIL [Concomitant]
     Indication: HYPERTENSION
     Dates: start: 19971201
  3. LEVOTHYROXINE SODIUM [Concomitant]
     Indication: HYPOTHYROIDISM
     Dates: start: 19901201
  4. PANTOPRAZOLE [Concomitant]
     Dates: start: 20001201
  5. CLEMASTINE FUMARATE [Concomitant]
     Dosage: 1 TBL
     Dates: start: 20080601
  6. PROMETHAZINE HCL [Concomitant]
     Dosage: 10 DROPS
     Dates: start: 20011201
  7. PREDNISOLONE [Concomitant]
     Indication: DERMATITIS
     Dates: start: 20080601
  8. FEXOFENADINE HCL [Concomitant]
     Indication: HYPERSENSITIVITY
     Dates: start: 20080613

REACTIONS (1)
  - HYPOGLYCAEMIA [None]
